FAERS Safety Report 21887412 (Version 2)
Quarter: 2023Q1

REPORT INFORMATION
  Report Type: Report from Study
  Country: US (occurrence: US)
  Receive Date: 20230120
  Receipt Date: 20230122
  Transmission Date: 20230418
  Serious: Yes (Other)
  Sender: FDA-Public Use
  Company Number: US-ABBVIE-4275145

PATIENT
  Age: 71 Year
  Sex: Female

DRUGS (1)
  1. HUMIRA [Suspect]
     Active Substance: ADALIMUMAB
     Indication: Rheumatoid arthritis
     Dosage: CITRATE FREE
     Route: 058
     Dates: start: 20211113

REACTIONS (10)
  - Breast cancer [Unknown]
  - Unevaluable event [Unknown]
  - Device issue [Unknown]
  - Incorrect dose administered [Unknown]
  - Injection site erythema [Unknown]
  - Injection site pruritus [Unknown]
  - Eye disorder [Unknown]
  - Injection site pain [Unknown]
  - Arthritis [Unknown]
  - Pain in extremity [Unknown]

NARRATIVE: CASE EVENT DATE: 20220107
